FAERS Safety Report 6176566-0 (Version None)
Quarter: 2009Q2

REPORT INFORMATION
  Report Type: 
  Country: None (occurrence: None)
  Receive Date: 20090501
  Receipt Date: 20090422
  Transmission Date: 20091009
  Serious: Yes (Other)
  Sender: FDA-Public Use
  Company Number: US-JNJCH-2009011258

PATIENT
  Age: 21 Year
  Sex: Female
  Weight: 90.7 kg

DRUGS (1)
  1. SUDAFED PE COLD + COUGH CAPLETS [Suspect]
     Indication: NASOPHARYNGITIS
     Dosage: TEXT:TWO
     Route: 048

REACTIONS (3)
  - HYPERSENSITIVITY [None]
  - PYREXIA [None]
  - RED MAN SYNDROME [None]
